FAERS Safety Report 23819693 (Version 1)
Quarter: 2024Q2

REPORT INFORMATION
  Report Type: Other
  Country: CL (occurrence: None)
  Receive Date: 20240506
  Receipt Date: 20240506
  Transmission Date: 20240715
  Serious: Yes (Death, Hospitalization, Disabling)
  Sender: FDA-Public Use
  Company Number: CL-ROCHE-3544693

PATIENT
  Age: 61 Year
  Sex: Female

DRUGS (8)
  1. POLATUZUMAB VEDOTIN [Suspect]
     Active Substance: POLATUZUMAB VEDOTIN
     Indication: Diffuse large B-cell lymphoma
     Route: 042
     Dates: start: 20240112
  2. POLATUZUMAB VEDOTIN [Suspect]
     Active Substance: POLATUZUMAB VEDOTIN
     Indication: Diffuse large B-cell lymphoma refractory
  3. RITUXIMAB [Suspect]
     Active Substance: RITUXIMAB
     Indication: Product used for unknown indication
     Route: 065
     Dates: start: 20240112
  4. BENDAMUSTINE [Concomitant]
     Active Substance: BENDAMUSTINE
     Dosage: FREQUENCY WAS NOT REPORTED
     Dates: start: 20240112
  5. ACYCLOVIR [Concomitant]
     Active Substance: ACYCLOVIR
  6. FLUCONAZOLE [Concomitant]
     Active Substance: FLUCONAZOLE
  7. BISOPROLOL [Concomitant]
     Active Substance: BISOPROLOL\BISOPROLOL FUMARATE
  8. FILGRASTIM [Concomitant]
     Active Substance: FILGRASTIM

REACTIONS (3)
  - Pneumonia [Fatal]
  - COVID-19 [Fatal]
  - Paresis [Recovering/Resolving]

NARRATIVE: CASE EVENT DATE: 20240201
